FAERS Safety Report 12969882 (Version 1)
Quarter: 2016Q4

REPORT INFORMATION
  Report Type: Spontaneous
  Country: US (occurrence: US)
  Receive Date: 20161123
  Receipt Date: 20161123
  Transmission Date: 20170207
  Serious: Yes (Hospitalization)
  Sender: FDA-Public Use
  Company Number: US-FRESENIUS KABI-FK201609043

PATIENT
  Age: 28 Year
  Sex: Male

DRUGS (2)
  1. SODIUM PHOSPHATES INJECTION (MANUFACTURER U NKNOWN) [Suspect]
     Active Substance: SODIUM PHOSPHATE, DIBASIC, ANHYDROUS\SODIUM PHOSPHATE, DIBASIC, HEPTAHYDRATE\SODIUM PHOSPHATE, MONOBASIC, MONOHYDRATE
     Indication: ELECTROLYTE SUBSTITUTION THERAPY
     Route: 065
  2. POTASSIUM PHOSPHATE 13.6% (MANUFACTURER UNKNOWN) [Suspect]
     Active Substance: POTASSIUM PHOSPHATE, MONOBASIC
     Indication: ELECTROLYTE SUBSTITUTION THERAPY
     Route: 065

REACTIONS (2)
  - Condition aggravated [Recovered/Resolved]
  - Hepatic encephalopathy [Recovered/Resolved]
